FAERS Safety Report 7642609-8 (Version None)
Quarter: 2011Q3

REPORT INFORMATION
  Report Type: 
  Country: None (occurrence: None)
  Receive Date: 20110728
  Receipt Date: 20110725
  Transmission Date: 20111222
  Serious: Yes (Other)
  Sender: FDA-Public Use
  Company Number: US-PFIZER INC-2011169115

PATIENT
  Sex: Female
  Weight: 77 kg

DRUGS (4)
  1. ASPIRIN [Concomitant]
     Dosage: 325 MG, UNK
  2. NAPROXEN (ALEVE) [Concomitant]
     Dosage: UNK, AS NEEDED
  3. METOPROLOL [Concomitant]
     Dosage: 50 MG, UNK
  4. LIPITOR [Suspect]
     Indication: STENT PLACEMENT
     Dosage: 20 MG, 1X/DAY
     Route: 048
     Dates: start: 20061001, end: 20110701

REACTIONS (5)
  - PAIN IN EXTREMITY [None]
  - ARTHRALGIA [None]
  - ARTHROSCOPIC SURGERY [None]
  - TENDONITIS [None]
  - KNEE ARTHROPLASTY [None]
